FAERS Safety Report 8581735-6 (Version None)
Quarter: 2012Q3

REPORT INFORMATION
  Report Type: 
  Country: None (occurrence: None)
  Receive Date: 20120809
  Receipt Date: 20120803
  Transmission Date: 20120928
  Serious: No
  Sender: FDA-Public Use
  Company Number: US-B.I. PHARMACEUTICALS,INC./RIDGEFIELD-2012-BP-17540BP

PATIENT
  Sex: Male
  Weight: 68 kg

DRUGS (3)
  1. SPIRIVA [Suspect]
     Indication: CHRONIC OBSTRUCTIVE PULMONARY DISEASE
     Dosage: 18 MCG
     Route: 055
  2. SPIRIVA [Suspect]
     Dosage: 18 MCG
     Route: 048
     Dates: start: 20120803, end: 20120803
  3. ALBUTEROL [Concomitant]
     Indication: LUNG DISORDER
     Route: 055
     Dates: start: 20110101

REACTIONS (1)
  - INCORRECT ROUTE OF DRUG ADMINISTRATION [None]
